FAERS Safety Report 5039110-7 (Version None)
Quarter: 2006Q2

REPORT INFORMATION
  Report Type: 
  Country: None (occurrence: None)
  Receive Date: 20060626
  Receipt Date: 20060616
  Transmission Date: 20061013
  Serious: No
  Sender: FDA-Public Use
  Company Number: 226070

PATIENT
  Age: 48 Year
  Sex: Female
  Weight: 114.7 kg

DRUGS (15)
  1. XOLAIR [Suspect]
     Indication: ASTHMA
     Dosage: 300 MG, Q4W, SUBCUTANEOUS
     Route: 058
     Dates: start: 20050628
  2. MAXAIR [Concomitant]
  3. SEREVENT [Concomitant]
  4. QVAR 40 [Concomitant]
  5. ZYRTEC [Concomitant]
  6. MAXZIDE [Concomitant]
  7. GLUCOPHAGE [Concomitant]
  8. CLONIDINE [Concomitant]
  9. AMITRIPTYLINE HCL [Concomitant]
  10. CARDURA [Concomitant]
  11. POTASSIUM (POTASSIUM NOS) [Concomitant]
  12. VITAMIN E [Concomitant]
  13. ASCORBIC ACID [Concomitant]
  14. ZINC (ZINC NOS) [Concomitant]
  15. DUONEB (ALBUTEROL, ALBUTEROL SULFATE, IPRATROPIUM BROMIDE) [Concomitant]

REACTIONS (3)
  - HISTAMINE LEVEL INCREASED [None]
  - URINE ANALYSIS ABNORMAL [None]
  - WHITE BLOOD CELL COUNT INCREASED [None]
